FAERS Safety Report 5406449-2 (Version None)
Quarter: 2007Q3

REPORT INFORMATION
  Report Type: 
  Country: None (occurrence: None)
  Receive Date: 20070713
  Receipt Date: 20070206
  Transmission Date: 20080115
  Serious: Yes (Hospitalization)
  Sender: FDA-Public Use
  Company Number: NSADSS2003009511

PATIENT
  Age: 32 Year
  Sex: Female
  Weight: 88.4514 kg

DRUGS (2)
  1. ORTHO EVRA [Suspect]
     Indication: CONTRACEPTION
     Dosage: 1, 3 IN 4 WEEK, TRANSDERMAL
     Route: 062
     Dates: start: 20020801
  2. PULMICORT (BUDESONIDE) AEROSOLS [Concomitant]

REACTIONS (2)
  - PULMONARY EMBOLISM [None]
  - THROMBOSIS [None]
